FAERS Safety Report 7217559-1 (Version None)
Quarter: 2011Q1

REPORT INFORMATION
  Report Type: 
  Country: None (occurrence: None)
  Receive Date: 20110110
  Receipt Date: 20110103
  Transmission Date: 20110831
  Serious: Yes (Other)
  Sender: FDA-Public Use
  Company Number: US-PFIZER INC-2011000982

PATIENT
  Sex: Female
  Weight: 70.748 kg

DRUGS (1)
  1. XALATAN [Suspect]
     Indication: GLAUCOMA
     Dosage: UNK

REACTIONS (3)
  - RENAL FAILURE [None]
  - HYPOAESTHESIA [None]
  - RESTLESS LEGS SYNDROME [None]
